FAERS Safety Report 4320826-2 (Version None)
Quarter: 2004Q1

REPORT INFORMATION
  Report Type: 
  Country: None (occurrence: None)
  Receive Date: 20040315
  Receipt Date: 20030128
  Transmission Date: 20041129
  Serious: Yes (Hospitalization)
  Sender: FDA-Public Use
  Company Number: PHEH2003US01105

PATIENT
  Age: 14 Year
  Sex: Male

DRUGS (3)
  1. TRILEPTAL [Suspect]
     Indication: BIPOLAR DISORDER
     Dosage: 900 MG, QD, ORAL
     Route: 048
     Dates: start: 20020905, end: 20021207
  2. ZYPREXA [Concomitant]
  3. KLONOPIN [Concomitant]

REACTIONS (3)
  - CONVULSION [None]
  - HYPOKINESIA [None]
  - LOSS OF CONSCIOUSNESS [None]
